FAERS Safety Report 8781437 (Version 1)
Quarter: 2012Q4

REPORT INFORMATION
  Report Type: 
  Country: US (occurrence: US)
  Receive Date: 20120913
  Receipt Date: 20120913
  Transmission Date: 20130627
  Serious: Yes (Other)
  Sender: FDA-Public Use
  Company Number: PHEH2012US017520

PATIENT
  Sex: Female

DRUGS (3)
  1. DIOVAN [Suspect]
  2. METFORMIN [Concomitant]
  3. ADDERALL [Concomitant]

REACTIONS (1)
  - Type 2 diabetes mellitus [Unknown]
